FAERS Safety Report 14555149 (Version 1)
Quarter: 2018Q1

REPORT INFORMATION
  Report Type: Spontaneous
  Country: US (occurrence: US)
  Receive Date: 20180219
  Receipt Date: 20180219
  Transmission Date: 20180509
  Serious: Yes (Other)
  Sender: FDA-Public Use
  Company Number: None

PATIENT
  Age: 60 Year
  Sex: Male
  Weight: 80.3 kg

DRUGS (1)
  1. FLEBOGAMMA [Suspect]
     Active Substance: HUMAN IMMUNOGLOBULIN G
     Indication: HYPOGLOBULINAEMIA
     Dosage: ?          OTHER FREQUENCY:ONCE;?
     Route: 041
     Dates: start: 20180215, end: 20180215

REACTIONS (7)
  - Cough [None]
  - Product quality issue [None]
  - Flushing [None]
  - Nausea [None]
  - Chills [None]
  - Infusion site reaction [None]
  - Headache [None]

NARRATIVE: CASE EVENT DATE: 20180215
